FAERS Safety Report 5705805-2 (Version None)
Quarter: 2008Q2

REPORT INFORMATION
  Report Type: 
  Country: None (occurrence: None)
  Receive Date: 20080411
  Receipt Date: 20080401
  Transmission Date: 20081010
  Serious: Yes (Death, Hospitalization)
  Sender: FDA-Public Use
  Company Number: 2008EN000041

PATIENT
  Age: 76 Year
  Sex: Female

DRUGS (5)
  1. ABELCET [Suspect]
     Indication: BRONCHOPULMONARY ASPERGILLOSIS
     Dosage: IV
     Route: 042
  2. ABELCET [Suspect]
     Indication: HISTOPLASMOSIS
     Dosage: IV
     Route: 042
  3. VORICONAZOLE [Suspect]
     Indication: BRONCHOPULMONARY ASPERGILLOSIS
  4. PREDNSONE [Concomitant]
  5. METHOTREXATE [Concomitant]

REACTIONS (8)
  - BONE MARROW GRANULOMA [None]
  - FUNGUS URINE TEST POSITIVE [None]
  - GRANULOMA [None]
  - GRANULOMATOUS LIVER DISEASE [None]
  - HISTOPLASMOSIS DISSEMINATED [None]
  - LYMPHADENOPATHY [None]
  - PULMONARY GRANULOMA [None]
  - SPLENIC GRANULOMA [None]
